FAERS Safety Report 18354580 (Version 1)
Quarter: 2020Q4

REPORT INFORMATION
  Report Type: Spontaneous
  Country: US (occurrence: US)
  Receive Date: 20201007
  Receipt Date: 20201007
  Transmission Date: 20210114
  Serious: No
  Sender: FDA-Public Use
  Company Number: US-BION-008893

PATIENT
  Age: 75 Year
  Sex: Female

DRUGS (1)
  1. BIONPHARMA^S PROGESTERONE CAPSULE 100 MG [Suspect]
     Active Substance: PROGESTERONE
     Indication: PRODUCT USED FOR UNKNOWN INDICATION
     Dosage: STRENGTH: 100 MG

REACTIONS (2)
  - Hot flush [Unknown]
  - Memory impairment [Unknown]
